FAERS Safety Report 24361633 (Version 2)
Quarter: 2024Q4

REPORT INFORMATION
  Report Type: Spontaneous
  Country: AR (occurrence: AR)
  Receive Date: 20240925
  Receipt Date: 20241008
  Transmission Date: 20250115
  Serious: Yes (Other)
  Sender: SANDOZ
  Company Number: AR-SANDOZ-SDZ2024AR082278

PATIENT
  Sex: Male
  Weight: 34 kg

DRUGS (2)
  1. OMNITROPE [Suspect]
     Active Substance: SOMATROPIN
     Indication: Growth retardation
     Dosage: 0.9 MG, QD (7 TIMES A WEEK)
     Route: 058
     Dates: start: 20220313
  2. OMNITROPE [Suspect]
     Active Substance: SOMATROPIN
     Indication: Growth hormone deficiency
     Dosage: 0,9 MG; 7 TIMES PER WEEK
     Route: 058
     Dates: start: 20220312

REACTIONS (3)
  - Growth retardation [Unknown]
  - Product use issue [Unknown]
  - Product supply issue [Unknown]
